FAERS Safety Report 12388534 (Version 1)
Quarter: 2016Q2

REPORT INFORMATION
  Report Type: Report from Study
  Country: US (occurrence: US)
  Receive Date: 20160520
  Receipt Date: 20160520
  Transmission Date: 20160815
  Serious: No
  Sender: FDA-Public Use
  Company Number: US-MDT-ADR-2016-00085

PATIENT
  Age: 68 Year
  Sex: Male

DRUGS (8)
  1. COMPOUNDED BACLOFEN [Suspect]
     Active Substance: BACLOFEN
     Dosage: 425.75MCG/DAY
     Route: 037
     Dates: start: 20150430
  2. BUPIVACAINE. [Suspect]
     Active Substance: BUPIVACAINE
     Dosage: 17.740MG/DAY
     Route: 037
     Dates: start: 20150430
  3. CLONIDINE. [Suspect]
     Active Substance: CLONIDINE
     Dosage: 97.47 MCG/DAY
     Route: 037
     Dates: end: 20150430
  4. DILAUDID [Suspect]
     Active Substance: HYDROMORPHONE HYDROCHLORIDE
     Dosage: 0.6498MG/DAY
     Route: 037
     Dates: end: 20150430
  5. CLONIDINE. [Suspect]
     Active Substance: CLONIDINE
     Dosage: 106.44MCG/DAY
     Route: 037
     Dates: start: 20150430
  6. COMPOUNDED BACLOFEN [Suspect]
     Active Substance: BACLOFEN
     Dosage: 389.89MCG/DAY
     Route: 037
     Dates: end: 20150430
  7. BUPIVACAINE. [Suspect]
     Active Substance: BUPIVACAINE
     Dosage: 16.245 MG/DAY
     Route: 037
     Dates: end: 20150430
  8. DILAUDID [Suspect]
     Active Substance: HYDROMORPHONE HYDROCHLORIDE
     Dosage: 0.7096MG/DAY
     Route: 037
     Dates: start: 20150430

REACTIONS (1)
  - Sedation [Recovered/Resolved]
